FAERS Safety Report 7557714-4 (Version None)
Quarter: 2011Q2

REPORT INFORMATION
  Report Type: 
  Country: None (occurrence: None)
  Receive Date: 20110620
  Receipt Date: 20110613
  Transmission Date: 20111010
  Serious: Yes (Other)
  Sender: FDA-Public Use
  Company Number: US-JNJFOC-20110606138

PATIENT
  Sex: Female
  Weight: 61.24 kg

DRUGS (5)
  1. ATIVAN [Concomitant]
     Indication: NEURALGIA
     Route: 048
  2. SOMA [Concomitant]
     Indication: BACK PAIN
     Route: 065
  3. DEMEROL [Concomitant]
     Indication: PAIN
     Route: 048
  4. DURAGESIC-100 [Suspect]
     Indication: PANCREATITIS CHRONIC
     Route: 062
     Dates: start: 20110601
  5. DURAGESIC-100 [Suspect]
     Route: 062
     Dates: start: 20060101

REACTIONS (3)
  - ERYTHEMA [None]
  - SURGERY [None]
  - PRODUCT QUALITY ISSUE [None]
